FAERS Safety Report 4520609-4 (Version None)
Quarter: 2004Q4

REPORT INFORMATION
  Report Type: 
  Country: None (occurrence: None)
  Receive Date: 20041203
  Receipt Date: 20041118
  Transmission Date: 20050328
  Serious: Yes (Hospitalization)
  Sender: FDA-Public Use
  Company Number: SP00374

PATIENT
  Age: 80 Year
  Sex: Female

DRUGS (2)
  1. COLAZAL [Suspect]
     Indication: COLITIS ULCERATIVE
     Dosage: 2.25G/TID, ORAL
     Route: 048
     Dates: start: 20040801
  2. ALLOPURINOL [Suspect]

REACTIONS (1)
  - IDIOPATHIC THROMBOCYTOPENIC PURPURA [None]
